FAERS Safety Report 15498438 (Version 2)
Quarter: 2018Q4

REPORT INFORMATION
  Report Type: Spontaneous
  Country: MX (occurrence: MX)
  Receive Date: 20181015
  Receipt Date: 20181022
  Transmission Date: 20190205
  Serious: Yes (Other)
  Sender: FDA-Public Use
  Company Number: PHHY2018MX122844

PATIENT
  Age: 32 Year
  Sex: Female

DRUGS (1)
  1. CARBAMAZEPINE. [Suspect]
     Active Substance: CARBAMAZEPINE
     Indication: EPILEPSY
     Dosage: 400 MG, BID
     Route: 065

REACTIONS (8)
  - Toxicity to various agents [Recovering/Resolving]
  - Irregular breathing [Recovering/Resolving]
  - Hypotonia [Recovering/Resolving]
  - Intentional overdose [Unknown]
  - Hyporeflexia [Recovering/Resolving]
  - Hypopnoea [Recovering/Resolving]
  - Neurological decompensation [Recovering/Resolving]
  - Loss of consciousness [Recovering/Resolving]
